FAERS Safety Report 16568076 (Version 1)
Quarter: 2019Q3

REPORT INFORMATION
  Report Type: Spontaneous
  Country: US (occurrence: US)
  Receive Date: 20190712
  Receipt Date: 20190712
  Transmission Date: 20191004
  Serious: No
  Sender: FDA-Public Use
  Company Number: US-PERRIGO-19US004502

PATIENT
  Sex: Female
  Weight: 104.31 kg

DRUGS (6)
  1. BABY ASPIRIN [Concomitant]
     Active Substance: ASPIRIN
     Indication: PROPHYLAXIS
     Dosage: 81 MG
     Route: 065
     Dates: start: 201903
  2. SENOKOT [Concomitant]
     Active Substance: SENNOSIDES
     Indication: CONSTIPATION
     Dosage: UNK
     Route: 065
  3. LACTOBACILLUS [Concomitant]
     Active Substance: LACTOBACILLUS ACIDOPHILUS
     Indication: SUPPLEMENTATION THERAPY
     Dosage: UNK
     Route: 065
     Dates: start: 201903
  4. ATORVASTATIN [Concomitant]
     Active Substance: ATORVASTATIN
     Indication: BLOOD CHOLESTEROL INCREASED
     Dosage: UNK
     Dates: start: 201903
  5. FUROSEMIDE. [Concomitant]
     Active Substance: FUROSEMIDE
     Indication: URINARY INCONTINENCE
     Dosage: UNK
     Route: 065
     Dates: start: 201903
  6. ECONAZOLE NITRATE. [Suspect]
     Active Substance: ECONAZOLE NITRATE
     Indication: TINEA PEDIS
     Dosage: SMALL AMOUNT, QD
     Route: 061
     Dates: start: 20190328, end: 20190404

REACTIONS (4)
  - Application site dryness [Not Recovered/Not Resolved]
  - Application site fissure [Not Recovered/Not Resolved]
  - Application site pain [Not Recovered/Not Resolved]
  - Drug ineffective [Unknown]

NARRATIVE: CASE EVENT DATE: 20190328
